FAERS Safety Report 14583692 (Version 1)
Quarter: 2018Q1

REPORT INFORMATION
  Report Type: Spontaneous
  Country: US (occurrence: US)
  Receive Date: 20180227
  Receipt Date: 20180227
  Transmission Date: 20180509
  Serious: Yes (Other)
  Sender: FDA-Public Use
  Company Number: None

PATIENT
  Age: 59 Year
  Sex: Male
  Weight: 94.5 kg

DRUGS (4)
  1. LISINOPRIL. [Concomitant]
     Active Substance: LISINOPRIL
  2. ZOLMITRIPTAN. [Suspect]
     Active Substance: ZOLMITRIPTAN
     Indication: MIGRAINE
     Dosage: ?          QUANTITY:6 TABLET(S);?
     Route: 060
     Dates: start: 20180109, end: 20180220
  3. MULTI VITAMIN [Concomitant]
     Active Substance: VITAMINS
  4. COSTCO [Concomitant]

REACTIONS (2)
  - Migraine [None]
  - Drug ineffective [None]

NARRATIVE: CASE EVENT DATE: 20180213
